FAERS Safety Report 7389150-8 (Version None)
Quarter: 2011Q2

REPORT INFORMATION
  Report Type: 
  Country: None (occurrence: None)
  Receive Date: 20110401
  Receipt Date: 20110324
  Transmission Date: 20111010
  Serious: Yes (Other)
  Sender: FDA-Public Use
  Company Number: JP-ROCHE-768131

PATIENT
  Sex: Female
  Weight: 13 kg

DRUGS (2)
  1. TAMIFLU [Suspect]
     Dosage: DOSAGE IS UNCERTAIN, DRY SYRUP 3%, TAKNE 3 DOSES IN TOTAL
     Route: 048
     Dates: start: 20110321, end: 20110322
  2. ANHIBA [Concomitant]
     Dosage: DOSAGE : UNCERTAIN, DRUG REPORTED ACETAMINOPHEN
     Route: 054
     Dates: start: 20110321

REACTIONS (1)
  - ABNORMAL BEHAVIOUR [None]
